APPROVED DRUG PRODUCT: TRIAMCINOLONE ACETONIDE
Active Ingredient: TRIAMCINOLONE ACETONIDE
Strength: 0.025%
Dosage Form/Route: CREAM;TOPICAL
Application: A089797 | Product #001 | TE Code: AT
Applicant: COSETTE PHARMACEUTICALS INC
Approved: May 31, 1991 | RLD: No | RS: No | Type: RX